FAERS Safety Report 8895790 (Version 1)
Quarter: 2012Q4

REPORT INFORMATION
  Report Type: 
  Country: US (occurrence: US)
  Receive Date: 20121108
  Receipt Date: 20121108
  Transmission Date: 20130627
  Serious: Yes (Other)
  Sender: FDA-Public Use
  Company Number: US-ELI_LILLY_AND_COMPANY-US201211000264

PATIENT
  Age: 19 None
  Sex: Female

DRUGS (4)
  1. PROZAC [Suspect]
     Indication: DEPRESSION
     Dosage: 1 DF, unknown
  2. LAMICTAL                                /SCH/ [Concomitant]
     Indication: EPILEPSY
     Dosage: 300 mg, qd
     Dates: start: 2010
  3. LAMICTAL                                /SCH/ [Concomitant]
     Dosage: 600 mg, qd
  4. ANTIBIOTICS [Concomitant]
     Dosage: 1 DF, unknown
     Dates: start: 201210

REACTIONS (4)
  - Convulsion [Unknown]
  - Suicide attempt [Unknown]
  - Petechiae [Unknown]
  - Rash [Unknown]
